FAERS Safety Report 5537464-6 (Version None)
Quarter: 2007Q4

REPORT INFORMATION
  Report Type: 
  Country: None (occurrence: None)
  Receive Date: 20071207
  Receipt Date: 20071129
  Transmission Date: 20080405
  Serious: Yes (Other)
  Sender: FDA-Public Use
  Company Number: CN-ASTRAZENECA-2007AP07635

PATIENT
  Age: 14 Year
  Sex: Female
  Weight: 40 kg

DRUGS (2)
  1. PROPOFOL [Suspect]
     Indication: MAINTENANCE OF ANAESTHESIA
     Route: 042
  2. FENTANYL [Interacting]
     Indication: MAINTENANCE OF ANAESTHESIA
     Route: 042

REACTIONS (3)
  - DRUG INTERACTION [None]
  - LOSS OF CONSCIOUSNESS [None]
  - OPISTHOTONUS [None]
